FAERS Safety Report 15639303 (Version 1)
Quarter: 2018Q4

REPORT INFORMATION
  Report Type: Spontaneous
  Country: CA (occurrence: CA)
  Receive Date: 20181120
  Receipt Date: 20181120
  Transmission Date: 20190205
  Serious: Yes (Life-Threatening)
  Sender: FDA-Public Use
  Company Number: CA-PFIZER INC-2018475471

PATIENT
  Sex: Male

DRUGS (1)
  1. MORPHINE SULFATE. [Suspect]
     Active Substance: MORPHINE SULFATE
     Dosage: UNK

REACTIONS (5)
  - Flushing [Unknown]
  - Palpitations [Unknown]
  - Feeling abnormal [Unknown]
  - Loss of consciousness [Unknown]
  - Product storage error [Unknown]
